FAERS Safety Report 20509817 (Version 7)
Quarter: 2022Q2

REPORT INFORMATION
  Report Type: Report from Study
  Country: US (occurrence: US)
  Receive Date: 20220224
  Receipt Date: 20220611
  Transmission Date: 20220721
  Serious: Yes (Other)
  Sender: FDA-Public Use
  Company Number: NVSC2022US041568

PATIENT
  Age: 56 Year
  Sex: Male

DRUGS (2)
  1. ENTRESTO [Suspect]
     Active Substance: SACUBITRIL\VALSARTAN
     Indication: Cardiac failure
     Dosage: 1 DOSAGE FORM, BID
     Route: 048
     Dates: start: 20220218
  2. ENTRESTO [Suspect]
     Active Substance: SACUBITRIL\VALSARTAN
     Dosage: 3 DOSAGE FORM (24/26 MG, ONE TABLET IN THE MORNING AND TWO TABLETS IN THE EVENING)
     Route: 048

REACTIONS (6)
  - Intracardiac thrombus [Recovered/Resolved]
  - Insomnia [Unknown]
  - Stress [Recovered/Resolved]
  - Weight decreased [Unknown]
  - Aortic aneurysm [Unknown]
  - Cough [Recovered/Resolved]

NARRATIVE: CASE EVENT DATE: 20220218
